FAERS Safety Report 14756942 (Version 1)
Quarter: 2018Q2

REPORT INFORMATION
  Report Type: Spontaneous
  Country: US (occurrence: US)
  Receive Date: 20180413
  Receipt Date: 20180413
  Transmission Date: 20180711
  Serious: No
  Sender: FDA-Public Use
  Company Number: US-BION-006616

PATIENT
  Sex: Male

DRUGS (1)
  1. NAPROXEN SODIUM 220 MG SOFT GEL BION [Suspect]
     Active Substance: NAPROXEN SODIUM
     Indication: ANALGESIC THERAPY
     Dosage: TAKE 2 CAPSULES BY MOUTH AS NEEDED (STRENGTH: 220 MG)
     Route: 048
     Dates: start: 201707, end: 20170824

REACTIONS (4)
  - Expired product administered [Not Recovered/Not Resolved]
  - Product adhesion issue [Unknown]
  - Product size issue [Unknown]
  - Burning sensation [Recovered/Resolved]

NARRATIVE: CASE EVENT DATE: 201707
